FAERS Safety Report 14095557 (Version 4)
Quarter: 2017Q4

REPORT INFORMATION
  Report Type: Spontaneous
  Country: US (occurrence: US)
  Receive Date: 20171017
  Receipt Date: 20171122
  Transmission Date: 20180321
  Serious: Yes (Other)
  Sender: FDA-Public Use
  Company Number: US-SUN PHARMACEUTICAL INDUSTRIES LTD-2017US-152445

PATIENT
  Age: 74 Year
  Sex: Female
  Weight: 50.79 kg

DRUGS (2)
  1. MIRTAZAPINE. [Suspect]
     Active Substance: MIRTAZAPINE
     Indication: ANXIETY
  2. MIRTAZAPINE. [Suspect]
     Active Substance: MIRTAZAPINE
     Indication: INSOMNIA
     Dosage: 1 DF, QD (AT BEDTIME)
     Route: 065
     Dates: start: 201709, end: 201709

REACTIONS (16)
  - Condition aggravated [Recovered/Resolved]
  - Pharyngeal oedema [Recovering/Resolving]
  - Drug ineffective [Unknown]
  - Viral infection [Unknown]
  - Headache [Recovering/Resolving]
  - Pneumonia [Recovering/Resolving]
  - Bronchitis [Recovering/Resolving]
  - Diarrhoea [Recovered/Resolved]
  - Incorrect dose administered [Recovered/Resolved]
  - Muscle twitching [Recovering/Resolving]
  - Dysuria [Recovered/Resolved]
  - Treatment noncompliance [Unknown]
  - Stomatitis [Not Recovered/Not Resolved]
  - Dry mouth [Recovering/Resolving]
  - Nightmare [Recovering/Resolving]
  - Pain [Recovering/Resolving]

NARRATIVE: CASE EVENT DATE: 2017
